FAERS Safety Report 15776277 (Version 1)
Quarter: 2018Q4

REPORT INFORMATION
  Report Type: Spontaneous
  Country: CZ (occurrence: CZ)
  Receive Date: 20181231
  Receipt Date: 20181231
  Transmission Date: 20190205
  Serious: Yes (Other)
  Sender: FDA-Public Use
  Company Number: CZ-BAYER-2018-241993

PATIENT
  Age: 28 Year
  Sex: Male

DRUGS (1)
  1. AVELOX [Suspect]
     Active Substance: MOXIFLOXACIN HYDROCHLORIDE
     Indication: SEXUALLY TRANSMITTED DISEASE
     Dosage: 400 MG, UNK
     Route: 048
     Dates: start: 20180925, end: 20181009

REACTIONS (3)
  - Paraesthesia [Unknown]
  - Illusion [Unknown]
  - Dysaesthesia [Unknown]

NARRATIVE: CASE EVENT DATE: 20180930
